FAERS Safety Report 24771335 (Version 2)
Quarter: 2025Q1

REPORT INFORMATION
  Report Type: Spontaneous
  Country: US (occurrence: US)
  Receive Date: 20241224
  Receipt Date: 20250217
  Transmission Date: 20250409
  Serious: No
  Sender: PAREXEL
  Company Number: US-BELCHER PHARMACEUTICALS, LLC-2024US004664

PATIENT

DRUGS (2)
  1. SEMAGLUTIDE [Suspect]
     Active Substance: SEMAGLUTIDE
     Indication: Decreased appetite
     Dates: start: 20241117
  2. SEMAGLUTIDE [Suspect]
     Active Substance: SEMAGLUTIDE

REACTIONS (2)
  - Drug ineffective for unapproved indication [Unknown]
  - Off label use [Unknown]
